FAERS Safety Report 22516499 (Version 2)
Quarter: 2025Q2

REPORT INFORMATION
  Report Type: Spontaneous
  Country: ES (occurrence: ES)
  Receive Date: 20230603
  Receipt Date: 20250422
  Transmission Date: 20250716
  Serious: Yes (Other)
  Sender: CELLTRION
  Company Number: ES-CELLTRION INC.-2023ES011254

PATIENT

DRUGS (8)
  1. RITUXIMAB [Suspect]
     Active Substance: RITUXIMAB
     Indication: Granulomatosis with polyangiitis
     Route: 065
  2. RITUXIMAB [Suspect]
     Active Substance: RITUXIMAB
     Route: 065
  3. ELASOMERAN [Suspect]
     Active Substance: ELASOMERAN
     Indication: COVID-19 prophylaxis
  4. ELASOMERAN [Suspect]
     Active Substance: ELASOMERAN
  5. ELASOMERAN [Suspect]
     Active Substance: ELASOMERAN
  6. SPIKEVAX (ELASOMERAN) [Suspect]
     Active Substance: ELASOMERAN
     Indication: COVID-19 prophylaxis
     Route: 065
  7. SPIKEVAX (ELASOMERAN) [Suspect]
     Active Substance: ELASOMERAN
     Route: 065
  8. SPIKEVAX (ELASOMERAN) [Suspect]
     Active Substance: ELASOMERAN
     Route: 065

REACTIONS (2)
  - COVID-19 [Unknown]
  - Humoral immune defect [Unknown]
